FAERS Safety Report 7502561-2 (Version None)
Quarter: 2011Q2

REPORT INFORMATION
  Report Type: 
  Country: None (occurrence: None)
  Receive Date: 20110525
  Receipt Date: 20110511
  Transmission Date: 20111010
  Serious: Yes (Other)
  Sender: FDA-Public Use
  Company Number: SE-ASTRAZENECA-2011SE28372

PATIENT
  Age: 60 Year
  Sex: Female

DRUGS (5)
  1. LIPITOR [Concomitant]
  2. ATACAND [Suspect]
     Indication: ESSENTIAL HYPERTENSION
     Route: 048
     Dates: end: 20101123
  3. LEVOTHYROXINE SODIUM [Concomitant]
  4. FENANTOIN [Concomitant]
  5. DYGRATYL [Concomitant]

REACTIONS (2)
  - ANGIOEDEMA [None]
  - PHARYNGEAL OEDEMA [None]
